FAERS Safety Report 9865469 (Version 3)
Quarter: 2014Q2

REPORT INFORMATION
  Report Type: Spontaneous
  Country: US (occurrence: US)
  Receive Date: 20140203
  Receipt Date: 20140403
  Transmission Date: 20141212
  Serious: Yes (Hospitalization, Disabling, Other)
  Sender: FDA-Public Use
  Company Number: US-009507513-1204USA00533

PATIENT
  Sex: Male
  Weight: 101.59 kg

DRUGS (22)
  1. FOSAMAX [Suspect]
     Indication: OSTEOPOROSIS
     Dosage: 10 MG, QD
     Route: 048
     Dates: start: 19990401
  2. FOSAMAX [Suspect]
     Dosage: 10 MG, QW
     Route: 048
     Dates: start: 20000421, end: 20020110
  3. FOSAMAX [Suspect]
     Dosage: 70 MG, QW
     Route: 048
     Dates: start: 20020215, end: 20080201
  4. ALENDRONATE SODIUM [Suspect]
     Indication: OSTEOPOROSIS
     Dosage: 70 MG, UNK
     Route: 048
     Dates: start: 20080229, end: 20110117
  5. LOPRESSOR [Concomitant]
     Indication: CORONARY ARTERY DISEASE
     Dosage: UNK
     Dates: start: 1996
  6. LOPRESSOR [Concomitant]
     Indication: HYPERTENSION
  7. LISINOPRIL [Concomitant]
     Indication: CORONARY ARTERY DISEASE
     Dosage: UNK
     Dates: start: 1996
  8. LISINOPRIL [Concomitant]
     Indication: HYPERTENSION
  9. ASPIRIN [Concomitant]
     Indication: CORONARY ARTERY DISEASE
     Dosage: 81 MG, UNK
     Dates: start: 1996
  10. FUROSEMIDE [Concomitant]
     Indication: CORONARY ARTERY DISEASE
     Dosage: UNK
     Dates: start: 1996
  11. ZOCOR [Concomitant]
     Indication: HYPERLIPIDAEMIA
     Dosage: 40 MG, QD
     Dates: start: 1996
  12. FLUTICASONE PROPIONATE [Concomitant]
     Indication: HYPERSENSITIVITY
  13. NITROGLYCERIN [Concomitant]
     Indication: CORONARY ARTERY DISEASE
  14. TIAZAC [Concomitant]
     Indication: HYPERTENSION
     Dosage: UNK
     Dates: start: 2000
  15. ZESTRIL [Concomitant]
     Indication: HYPERTENSION
     Dosage: UNK
     Dates: start: 2000
  16. PRINIVIL [Concomitant]
     Indication: HYPERTENSION
     Dosage: UNK
     Dates: start: 2000
  17. MAVIK [Concomitant]
     Indication: HYPERTENSION
     Dosage: UNK
     Dates: start: 2000
  18. ACCUPRIL [Concomitant]
     Indication: HYPERTENSION
     Dosage: UNK
     Dates: start: 2000
  19. SIMVASTATIN [Concomitant]
     Indication: BLOOD CHOLESTEROL INCREASED
     Dosage: UNK
     Dates: start: 2000
  20. GEMFIBROZIL [Concomitant]
     Indication: BLOOD CHOLESTEROL INCREASED
     Dosage: UNK
     Dates: start: 2000
  21. LIPITOR [Concomitant]
     Indication: BLOOD CHOLESTEROL INCREASED
     Dosage: UNK
     Dates: start: 2000
  22. CALTRATE + D [Concomitant]
     Indication: OSTEOPOROSIS
     Dosage: UNK, BID
     Dates: start: 19990401

REACTIONS (47)
  - Intramedullary rod insertion [Unknown]
  - Bone disorder [Unknown]
  - Femur fracture [Unknown]
  - Intramedullary rod insertion [Unknown]
  - Urinary retention postoperative [Unknown]
  - Blood parathyroid hormone increased [Unknown]
  - Colitis ulcerative [Unknown]
  - Fat embolism [Unknown]
  - Haematoma [Unknown]
  - Postoperative fever [Recovered/Resolved]
  - Haematoma [Unknown]
  - Atelectasis [Recovering/Resolving]
  - Sinus tachycardia [Unknown]
  - Orthostatic hypotension [Unknown]
  - Chest pain [Unknown]
  - Osteoporosis [Not Recovered/Not Resolved]
  - Low turnover osteopathy [Not Recovered/Not Resolved]
  - Anaemia [Unknown]
  - Pyrexia [Recovered/Resolved]
  - Femur fracture [Unknown]
  - Blister [Unknown]
  - Vitamin D deficiency [Unknown]
  - Hypercalcaemia [Unknown]
  - Fall [Unknown]
  - Urinary retention [Recovered/Resolved]
  - Spider vein [Unknown]
  - Folate deficiency [Unknown]
  - Seborrhoeic keratosis [Unknown]
  - Actinic keratosis [Unknown]
  - Acrochordon [Unknown]
  - Acrochordon [Unknown]
  - Sinusitis [Unknown]
  - Cystitis [Unknown]
  - Obstructive uropathy [Unknown]
  - Prostatitis [Unknown]
  - Osteoarthritis [Unknown]
  - Sciatica [Unknown]
  - Abdominal hernia [Unknown]
  - Pulmonary granuloma [Unknown]
  - Adverse event [Unknown]
  - Bone disorder [Unknown]
  - Fracture [Unknown]
  - Diverticulum [Unknown]
  - Gastrointestinal disorder [Unknown]
  - Back pain [Not Recovered/Not Resolved]
  - Musculoskeletal pain [Unknown]
  - Constipation [Recovering/Resolving]
